FAERS Safety Report 6510099-4 (Version None)
Quarter: 2009Q4

REPORT INFORMATION
  Report Type: 
  Country: None (occurrence: None)
  Receive Date: 20091222
  Receipt Date: 20091007
  Transmission Date: 20100525
  Serious: No
  Sender: FDA-Public Use
  Company Number: US-BAUSCH-2009BL005085

PATIENT
  Age: 42 Year
  Sex: Female

DRUGS (1)
  1. ALAWAY [Suspect]
     Indication: HYPERSENSITIVITY
     Route: 047
     Dates: start: 20090930, end: 20091001

REACTIONS (1)
  - DRUG INEFFECTIVE [None]
